FAERS Safety Report 21948880 (Version 2)
Quarter: 2023Q2

REPORT INFORMATION
  Report Type: Spontaneous
  Country: JP (occurrence: JP)
  Receive Date: 20230203
  Receipt Date: 20230414
  Transmission Date: 20230721
  Serious: Yes (Hospitalization, Other)
  Sender: FDA-Public Use
  Company Number: JP-ASTELLAS-2023JP001405

PATIENT
  Age: 0 Year
  Sex: Female
  Weight: 1.248 kg

DRUGS (10)
  1. PROGRAF [Suspect]
     Active Substance: TACROLIMUS
     Indication: Systemic lupus erythematosus
     Route: 064
     Dates: start: 201907
  2. PROGRAF [Suspect]
     Active Substance: TACROLIMUS
     Route: 063
     Dates: start: 20200222
  3. PREDONINE [Concomitant]
     Active Substance: PREDNISOLONE
     Indication: Systemic lupus erythematosus
     Route: 064
     Dates: start: 201909
  4. PREDONINE [Concomitant]
     Active Substance: PREDNISOLONE
     Route: 063
     Dates: start: 20200222
  5. PLAQUENIL [Concomitant]
     Active Substance: HYDROXYCHLOROQUINE SULFATE
     Indication: Systemic lupus erythematosus
     Route: 064
     Dates: start: 201907
  6. PLAQUENIL [Concomitant]
     Active Substance: HYDROXYCHLOROQUINE SULFATE
     Route: 063
     Dates: start: 20200222
  7. Calfina [Concomitant]
     Indication: Prophylaxis
     Dosage: 1.0 ?G, ONCE DAILY
     Route: 064
     Dates: start: 201909
  8. Calfina [Concomitant]
     Dosage: 1.0 ?G, ONCE DAILY
     Route: 063
     Dates: start: 20200222
  9. NEXIUM [Concomitant]
     Active Substance: ESOMEPRAZOLE MAGNESIUM
     Indication: Prophylaxis
     Route: 064
     Dates: start: 201909
  10. NEXIUM [Concomitant]
     Active Substance: ESOMEPRAZOLE MAGNESIUM
     Route: 063
     Dates: start: 20200222

REACTIONS (4)
  - Premature baby [Recovered/Resolved]
  - Low birth weight baby [Recovered/Resolved]
  - Foetal exposure during pregnancy [Unknown]
  - Exposure via breast milk [Unknown]

NARRATIVE: CASE EVENT DATE: 20190701
